FAERS Safety Report 13597145 (Version 3)
Quarter: 2017Q3

REPORT INFORMATION
  Report Type: Spontaneous
  Country: JP (occurrence: JP)
  Receive Date: 20170531
  Receipt Date: 20170707
  Transmission Date: 20171127
  Serious: Yes (Other)
  Sender: FDA-Public Use
  Company Number: JP-ASTRAZENECA-2017SE56581

PATIENT
  Age: 72 Year
  Sex: Male

DRUGS (3)
  1. TENELIA [Concomitant]
     Active Substance: TENELIGLIPTIN
  2. METGLUCO [Concomitant]
     Active Substance: METFORMIN HYDROCHLORIDE
  3. FORXIGA [Suspect]
     Active Substance: DAPAGLIFLOZIN
     Indication: TYPE 2 DIABETES MELLITUS
     Route: 048
     Dates: start: 20150903, end: 20170518

REACTIONS (2)
  - Treatment noncompliance [Unknown]
  - Brain stem infarction [Recovered/Resolved]

NARRATIVE: CASE EVENT DATE: 20170518
